FAERS Safety Report 5174265-5 (Version None)
Quarter: 2006Q4

REPORT INFORMATION
  Report Type: 
  Country: None (occurrence: None)
  Receive Date: 20061214
  Receipt Date: 20061204
  Transmission Date: 20070319
  Serious: Yes (Hospitalization, Other)
  Sender: FDA-Public Use
  Company Number: DE-JNJFOC-20061200297

PATIENT
  Sex: Female
  Weight: 46.2 kg

DRUGS (3)
  1. RISPERDAL [Suspect]
     Indication: PSYCHOTIC DISORDER
     Route: 048
     Dates: start: 20060901, end: 20061012
  2. CLEXANE [Concomitant]
     Indication: IMMOBILE
     Route: 058
  3. INFECTOTRIMET [Concomitant]
     Indication: URINARY TRACT INFECTION
     Route: 048

REACTIONS (4)
  - ANAEMIA [None]
  - BONE MARROW TOXICITY [None]
  - GRANULOCYTOPENIA [None]
  - LEUKOPENIA [None]
